FAERS Safety Report 19867058 (Version 1)
Quarter: 2021Q3

REPORT INFORMATION
  Report Type: Spontaneous
  Country: US (occurrence: US)
  Receive Date: 20210922
  Receipt Date: 20210922
  Transmission Date: 20211014
  Serious: Yes (Life-Threatening, Other)
  Sender: FDA-Public Use
  Company Number: US-PRA-000132

PATIENT
  Age: 71 Year

DRUGS (1)
  1. METHYLPREDNISOLONE. [Suspect]
     Active Substance: METHYLPREDNISOLONE
     Indication: ENTERITIS
     Route: 042

REACTIONS (2)
  - Enteritis [Recovered/Resolved]
  - Disease progression [Recovered/Resolved]
